FAERS Safety Report 15834877 (Version 1)
Quarter: 2019Q1

REPORT INFORMATION
  Report Type: Spontaneous
  Country: US (occurrence: US)
  Receive Date: 20190116
  Receipt Date: 20190116
  Transmission Date: 20190417
  Serious: Yes (Hospitalization)
  Sender: FDA-Public Use
  Company Number: US-PFIZER INC-2019018345

PATIENT
  Age: 49 Year
  Sex: Male

DRUGS (6)
  1. LITHIUM. [Suspect]
     Active Substance: LITHIUM
     Dosage: 600 MG, 2X/DAY
  2. ABILIFY [Suspect]
     Active Substance: ARIPIPRAZOLE
     Dosage: 15 MG, UNK
     Route: 048
     Dates: start: 2018, end: 2018
  3. ATORVASTATIN CALCIUM. [Suspect]
     Active Substance: ATORVASTATIN CALCIUM
     Dosage: UNK
  4. SEROQUEL [Suspect]
     Active Substance: QUETIAPINE FUMARATE
     Dosage: 25 MG, UNK
     Dates: start: 2018
  5. BLACK COHOSH [Suspect]
     Active Substance: BLACK COHOSH
     Dosage: UNK
  6. ABILIFY [Suspect]
     Active Substance: ARIPIPRAZOLE
     Dosage: 30 MG, UNK
     Dates: start: 2018, end: 2018

REACTIONS (5)
  - Sleep disorder [Recovering/Resolving]
  - Blood oestrogen abnormal [Unknown]
  - Hormone level abnormal [Unknown]
  - Delusion [Unknown]
  - Blood prolactin increased [Unknown]

NARRATIVE: CASE EVENT DATE: 2018
